FAERS Safety Report 21754177 (Version 1)
Quarter: 2022Q4

REPORT INFORMATION
  Report Type: Spontaneous
  Country: US (occurrence: None)
  Receive Date: 20221219
  Receipt Date: 20221219
  Transmission Date: 20230113
  Serious: No
  Sender: FDA-Public Use
  Company Number: None

PATIENT
  Age: 27 Year
  Sex: Female

DRUGS (1)
  1. VILAZODONE [Suspect]
     Active Substance: VILAZODONE

REACTIONS (6)
  - Product substitution issue [None]
  - Agitation [None]
  - Anxiety [None]
  - Irritability [None]
  - Confusional state [None]
  - Malaise [None]

NARRATIVE: CASE EVENT DATE: 20220820
